FAERS Safety Report 23900797 (Version 1)
Quarter: 2024Q2

REPORT INFORMATION
  Report Type: Spontaneous
  Country: US (occurrence: None)
  Receive Date: 20240526
  Receipt Date: 20240526
  Transmission Date: 20240715
  Serious: No
  Sender: FDA-Public Use
  Company Number: US-ROCHE-3346971

PATIENT

DRUGS (2)
  1. OCREVUS [Suspect]
     Active Substance: OCRELIZUMAB
     Indication: Product used for unknown indication
     Route: 065
     Dates: start: 20230508
  2. KESIMPTA [Concomitant]
     Active Substance: OFATUMUMAB

REACTIONS (2)
  - Hypersensitivity [Unknown]
  - Weight increased [Unknown]

NARRATIVE: CASE EVENT DATE: 20230508
